FAERS Safety Report 7420758 (Version 1)
Quarter: 2020Q3

REPORT INFORMATION
  Report Type: Report from Study
  Country: RS (occurrence: None)
  Receive Date: 20100616
  Receipt Date: 20100616
  Transmission Date: 20201104
  Serious: Yes (Hospitalization)
  Sender: FDA-Public Use
  Company Number: CS-JNJFOC-20070903320

PATIENT
  Age: 42 Year
  Sex: Female
  Weight: 67 kg

DRUGS (2)
  1. PALIPERIDONE. [Suspect]
     Active Substance: PALIPERIDONE
     Indication: BIPOLAR I DISORDER
     Route: 048
  2. PALIPERIDONE. [Suspect]
     Active Substance: PALIPERIDONE
     Route: 048

REACTIONS (1)
  - Depression [Recovered/Resolved]

NARRATIVE: CASE EVENT DATE: 20070913
